FAERS Safety Report 5055340-2 (Version None)
Quarter: 2006Q3

REPORT INFORMATION
  Report Type: 
  Country: None (occurrence: None)
  Receive Date: 20060719
  Receipt Date: 20060710
  Transmission Date: 20061208
  Serious: Yes (Other)
  Sender: FDA-Public Use
  Company Number: US-JNJFOC-20060702196

PATIENT
  Age: 24 Year
  Sex: Female

DRUGS (1)
  1. EXTRA STRENGTH TYLENOL [Suspect]
     Indication: HEADACHE
     Dosage: 2 DOSES AT BEDTIME, AS NEEDED (4 TIMES PER WEEK)
     Route: 048

REACTIONS (3)
  - DEPENDENCE [None]
  - EPISTAXIS [None]
  - RHINORRHOEA [None]
